FAERS Safety Report 5209938-9 (Version None)
Quarter: 2006Q4

REPORT INFORMATION
  Report Type: 
  Country: None (occurrence: None)
  Receive Date: 20061128
  Receipt Date: 20060823
  Transmission Date: 20070319
  Serious: Yes (Other)
  Sender: FDA-Public Use
  Company Number: 2006-04687

PATIENT
  Age: 56 Year
  Sex: Female

DRUGS (6)
  1. INFED [Suspect]
     Indication: IRON DEFICIENCY
     Dosage: 0.1 ML, SINGLE TEST DOSE, INTRAVENOUS
     Route: 042
     Dates: start: 20060802, end: 20060802
  2. PHENERGAN ^WYETH-AYERST^ [Concomitant]
  3. VALIUM [Concomitant]
  4. VICODIN [Concomitant]
  5. LOVASTATIN [Concomitant]
  6. FOSAMAX [Concomitant]

REACTIONS (8)
  - ANAPHYLACTIC SHOCK [None]
  - BACK PAIN [None]
  - CHEST PAIN [None]
  - DYSPNOEA [None]
  - FLUSHING [None]
  - HYPERTENSION [None]
  - TREMOR [None]
  - WHEEZING [None]
